FAERS Safety Report 20061932 (Version 2)
Quarter: 2021Q4

REPORT INFORMATION
  Report Type: Spontaneous
  Country: US (occurrence: US)
  Receive Date: 20211112
  Receipt Date: 20211207
  Transmission Date: 20220303
  Serious: Yes (Other)
  Sender: FDA-Public Use
  Company Number: US-ALXN-A202112138

PATIENT
  Sex: Female

DRUGS (1)
  1. ULTOMIRIS [Suspect]
     Active Substance: RAVULIZUMAB-CWVZ
     Indication: Atypical haemolytic uraemic syndrome
     Dosage: UNK
     Route: 065
     Dates: end: 202109

REACTIONS (1)
  - Renal transplant failure [Not Recovered/Not Resolved]
